FAERS Safety Report 17644993 (Version 1)
Quarter: 2020Q2

REPORT INFORMATION
  Report Type: Spontaneous
  Country: US (occurrence: US)
  Receive Date: 20200408
  Receipt Date: 20200408
  Transmission Date: 20200713
  Serious: Yes (Hospitalization)
  Sender: FDA-Public Use
  Company Number: None

PATIENT
  Age: 66 Year
  Sex: Male
  Weight: 76.95 kg

DRUGS (9)
  1. ALPRAZOLAM. [Concomitant]
     Active Substance: ALPRAZOLAM
  2. LEXAPRO [Concomitant]
     Active Substance: ESCITALOPRAM OXALATE
  3. COLACE [Concomitant]
     Active Substance: DOCUSATE SODIUM
  4. OXYCODONE [Concomitant]
     Active Substance: OXYCODONE
  5. PROZAC [Concomitant]
     Active Substance: FLUOXETINE HYDROCHLORIDE
  6. PROBIOTICS [Concomitant]
     Active Substance: PROBIOTICS NOS
  7. CBD OIL [Concomitant]
     Active Substance: CANNABIDIOL\HERBALS
  8. CIPRO [Concomitant]
     Active Substance: CIPROFLOXACIN HYDROCHLORIDE
  9. ERIVEDGE [Suspect]
     Active Substance: VISMODEGIB
     Indication: BASAL CELL CARCINOMA
     Route: 048
     Dates: start: 20200318

REACTIONS (2)
  - White blood cell count increased [None]
  - Blood calcium increased [None]

NARRATIVE: CASE EVENT DATE: 20200408
